FAERS Safety Report 5014291-X (Version None)
Quarter: 2006Q2

REPORT INFORMATION
  Report Type: 
  Country: None (occurrence: None)
  Receive Date: 20060414
  Receipt Date: 20051227
  Transmission Date: 20061013
  Serious: No
  Sender: FDA-Public Use
  Company Number: 2005SP004526

PATIENT
  Age: 69 Year
  Sex: Male
  Weight: 86.1834 kg

DRUGS (5)
  1. LUNESTA [Suspect]
     Indication: INSOMNIA
     Dosage: 2 MG;HS;ORAL
     Route: 048
     Dates: start: 20051221, end: 20051225
  2. CRESTOR [Concomitant]
  3. TRICOR [Concomitant]
  4. ASPIRIN [Concomitant]
  5. AMBIEN [Concomitant]

REACTIONS (2)
  - DRUG INEFFECTIVE [None]
  - MIDDLE INSOMNIA [None]
